FAERS Safety Report 8849567 (Version 1)
Quarter: 2012Q4

REPORT INFORMATION
  Report Type: Spontaneous
  Country: US (occurrence: None)
  Receive Date: 20121018
  Receipt Date: 20121018
  Transmission Date: 20130627
  Serious: Yes (Hospitalization)
  Sender: FDA-Public Use
  Company Number: None

PATIENT
  Age: 49 Year
  Sex: Male
  Weight: 99.33 kg

DRUGS (2)
  1. ENOXAPARIN [Suspect]
     Indication: DVT
     Route: 058
     Dates: start: 20120519, end: 20120523
  2. ENOXAPARIN [Suspect]
     Indication: DVT
     Route: 058

REACTIONS (2)
  - Haematuria [None]
  - International normalised ratio decreased [None]
